FAERS Safety Report 9227494 (Version 2)
Quarter: 2013Q2

REPORT INFORMATION
  Report Type: Report from Study
  Country: CA (occurrence: CA)
  Receive Date: 20130412
  Receipt Date: 20130416
  Transmission Date: 20140414
  Serious: Yes (Other)
  Sender: FDA-Public Use
  Company Number: PHHY2013CA035149

PATIENT
  Sex: Male

DRUGS (3)
  1. ACLASTA [Suspect]
     Indication: OSTEOPOROSIS
     Dosage: UNK UKN, 1 PER YEAR
     Route: 042
     Dates: start: 20130404
  2. ASPIRIN [Concomitant]
     Dosage: UNK UKN, UNK
  3. CAD [Concomitant]
     Dosage: UNK UKN, UNK

REACTIONS (6)
  - Fall [Unknown]
  - Prostatic haemorrhage [Unknown]
  - Influenza like illness [Unknown]
  - Chills [Unknown]
  - Asthenia [Unknown]
  - Dizziness [Unknown]
